FAERS Safety Report 8031509-X (Version None)
Quarter: 2012Q1

REPORT INFORMATION
  Report Type: 
  Country: None (occurrence: None)
  Receive Date: 20120109
  Receipt Date: 20120104
  Transmission Date: 20120608
  Serious: Yes (Other)
  Sender: FDA-Public Use
  Company Number: US-PFIZER INC-2012002823

PATIENT
  Sex: Female
  Weight: 68.027 kg

DRUGS (3)
  1. PREPARATION H HEMORRHOIDAL SUPPOSITORIES [Suspect]
     Indication: HAEMORRHAGE
     Dosage: UNK, 4X/DAY
     Route: 054
     Dates: start: 20111230, end: 20111231
  2. CYMBALTA [Concomitant]
     Indication: DEPRESSION
     Dosage: UNK
  3. SEROQUEL [Concomitant]
     Indication: SLEEP DISORDER
     Dosage: 50 MG, UNK

REACTIONS (1)
  - HAEMORRHOIDAL HAEMORRHAGE [None]
